FAERS Safety Report 23117858 (Version 1)
Quarter: 2023Q4

REPORT INFORMATION
  Report Type: Spontaneous
  Country: US (occurrence: US)
  Receive Date: 20231027
  Receipt Date: 20231027
  Transmission Date: 20240110
  Serious: No
  Sender: FDA-Public Use
  Company Number: US-PFIZER INC-202300339301

PATIENT
  Age: 77 Year

DRUGS (1)
  1. METHOTREXATE SODIUM [Suspect]
     Active Substance: METHOTREXATE SODIUM
     Dosage: 10 MG, WEEKLY

REACTIONS (5)
  - Visual impairment [Unknown]
  - Nausea [Unknown]
  - Pain [Unknown]
  - Liver function test increased [Unknown]
  - Muscle spasms [Unknown]
